FAERS Safety Report 9325294 (Version 1)
Quarter: 2013Q2

REPORT INFORMATION
  Report Type: Spontaneous
  Country: US (occurrence: US)
  Receive Date: 20130604
  Receipt Date: 20130604
  Transmission Date: 20140414
  Serious: No
  Sender: FDA-Public Use
  Company Number: US-BIOGENIDEC-2013BI047413

PATIENT
  Sex: Male

DRUGS (1)
  1. AVONEX [Suspect]
     Indication: MULTIPLE SCLEROSIS
     Route: 030

REACTIONS (6)
  - Tinnitus [Unknown]
  - Disorientation [Unknown]
  - Visual impairment [Unknown]
  - Coordination abnormal [Unknown]
  - Gait disturbance [Unknown]
  - Depression [Unknown]
